FAERS Safety Report 12914441 (Version 3)
Quarter: 2017Q1

REPORT INFORMATION
  Report Type: Spontaneous
  Country: US (occurrence: US)
  Receive Date: 20161106
  Receipt Date: 20170119
  Transmission Date: 20170428
  Serious: Yes (Death, Hospitalization)
  Sender: FDA-Public Use
  Company Number: US-RELYPSA-RLY2016001684

PATIENT
  Age: 65 Year
  Sex: Male

DRUGS (13)
  1. NOVOLOG [Concomitant]
     Active Substance: INSULIN ASPART
  2. RENVELA [Concomitant]
     Active Substance: SEVELAMER CARBONATE
  3. CALCITRIOL. [Concomitant]
     Active Substance: CALCITRIOL
  4. CLONIDINE HCL [Concomitant]
     Active Substance: CLONIDINE HYDROCHLORIDE
  5. LEVEMIR [Concomitant]
     Active Substance: INSULIN DETEMIR
  6. METOPROLOL TARTRATE. [Concomitant]
     Active Substance: METOPROLOL TARTRATE
  7. SIMVASTATIN. [Concomitant]
     Active Substance: SIMVASTATIN
  8. LISINOPRIL. [Concomitant]
     Active Substance: LISINOPRIL
  9. TORSEMIDE. [Concomitant]
     Active Substance: TORSEMIDE
  10. COLACE [Concomitant]
     Active Substance: DOCUSATE SODIUM
  11. VELTASSA [Suspect]
     Active Substance: PATIROMER
     Indication: HYPERKALAEMIA
     Dosage: 8.4 G, QD
     Route: 048
     Dates: start: 201606
  12. GENTAK [Concomitant]
     Active Substance: GENTAMICIN SULFATE
  13. EPOGEN [Concomitant]
     Active Substance: ERYTHROPOIETIN

REACTIONS (2)
  - Death [Fatal]
  - Blood potassium decreased [Unknown]

NARRATIVE: CASE EVENT DATE: 20160803
